FAERS Safety Report 5729043-2 (Version None)
Quarter: 2008Q2

REPORT INFORMATION
  Report Type: 
  Country: None (occurrence: None)
  Receive Date: 20080505
  Receipt Date: 20080505
  Transmission Date: 20081010
  Serious: Yes (Other)
  Sender: FDA-Public Use
  Company Number: None

PATIENT
  Age: 38 Year
  Sex: Female
  Weight: 77.1115 kg

DRUGS (2)
  1. ABILIFY [Suspect]
     Indication: BIPOLAR DISORDER
     Dosage: 5MG X 7DAYS  DAILY/BEDTIME  ORAL
     Route: 048
     Dates: start: 20080409, end: 20080416
  2. ABILIFY [Suspect]
     Indication: ANXIETY
     Dosage: 10MG THEREAFTER DAILY/BEDTIME ORAL
     Route: 048
     Dates: start: 20080416, end: 20080424

REACTIONS (2)
  - HALLUCINATION, TACTILE [None]
  - HALLUCINATIONS, MIXED [None]
